FAERS Safety Report 7335435-0 (Version None)
Quarter: 2011Q1

REPORT INFORMATION
  Report Type: 
  Country: None (occurrence: None)
  Receive Date: 20110307
  Receipt Date: 20110223
  Transmission Date: 20110831
  Serious: Yes (Hospitalization, Other)
  Sender: FDA-Public Use
  Company Number: JP-AMGEN-KDC428928

PATIENT
  Age: 45 Year
  Sex: Male
  Weight: 96 kg

DRUGS (19)
  1. PROTECADIN [Concomitant]
     Route: 048
  2. OXINORM [Concomitant]
     Route: 048
  3. CALCIUM LEVOFOLINATE [Suspect]
     Dosage: 375 MG, Q2WK
     Route: 041
     Dates: start: 20100720
  4. MINOMYCIN [Concomitant]
     Dosage: UNK UNK, UNK
     Route: 048
  5. MINOMYCIN [Concomitant]
     Route: 048
  6. ALLEGRA [Concomitant]
     Route: 048
  7. PANITUMUMAB [Suspect]
     Dosage: 6 MG/KG, Q2WK
     Route: 041
     Dates: start: 20100720, end: 20100720
  8. IRINOTECAN HYDROCHLORIDE [Suspect]
     Dosage: 120 MG, Q2WK
     Route: 041
     Dates: start: 20100720
  9. PYDOXAL [Concomitant]
     Dosage: UNK UNK, UNK
     Route: 048
  10. FLUOROURACIL [Suspect]
     Dosage: 4500 MG, Q2WK
     Route: 041
     Dates: start: 20100720
  11. CORTICOSTEROIDS [Concomitant]
     Indication: PROPHYLAXIS
     Route: 065
  12. DECADRON [Concomitant]
     Route: 048
  13. TALION [Concomitant]
     Route: 048
  14. OXYCONTIN [Concomitant]
     Route: 048
  15. ROHYPNOL [Concomitant]
     Route: 048
  16. FLUOROURACIL [Suspect]
     Dosage: 750 MG, Q2WK
     Route: 040
     Dates: start: 20100720
  17. EMEND [Concomitant]
     Route: 048
  18. PANITUMUMAB [Suspect]
     Dosage: 4.8 MG/KG, Q2WK
     Route: 041
     Dates: start: 20100824, end: 20101130
  19. LOPEMIN [Concomitant]
     Route: 048

REACTIONS (2)
  - HEPATIC FUNCTION ABNORMAL [None]
  - DERMATITIS ACNEIFORM [None]
